FAERS Safety Report 9083666 (Version 1)
Quarter: 2013Q1

REPORT INFORMATION
  Report Type: Report from Study
  Country: US (occurrence: US)
  Receive Date: 20130129
  Receipt Date: 20130129
  Transmission Date: 20140127
  Serious: No
  Sender: FDA-Public Use
  Company Number: US-ABBOTT-12P-163-0950302-00

PATIENT
  Age: 36 Year
  Sex: Female

DRUGS (3)
  1. HUMIRA 40 MG/0.8 ML PEN [Suspect]
     Indication: PSORIASIS
     Dates: start: 20120608, end: 20120608
  2. HUMIRA 40 MG/0.8 ML PEN [Suspect]
     Dates: start: 20120615
  3. LISINOPRIL [Concomitant]
     Indication: HYPERTENSION
     Dosage: 20 OR 25MG DAILY
     Route: 048

REACTIONS (2)
  - Injection site erythema [Not Recovered/Not Resolved]
  - Injection site pruritus [Not Recovered/Not Resolved]
